FAERS Safety Report 7329448-2 (Version None)
Quarter: 2011Q1

REPORT INFORMATION
  Report Type: 
  Country: None (occurrence: None)
  Receive Date: 20110303
  Receipt Date: 20110222
  Transmission Date: 20110831
  Serious: Yes (Other)
  Sender: FDA-Public Use
  Company Number: US-BAXTER-2011BH004269

PATIENT
  Age: 51 Year
  Sex: Male

DRUGS (5)
  1. BACTRIM DS [Suspect]
  2. DIANEAL [Suspect]
     Indication: PERITONEAL DIALYSIS
     Route: 033
  3. DIANEAL [Suspect]
     Indication: PERITONEAL DIALYSIS
     Route: 033
  4. DIANEAL [Suspect]
     Route: 033
     Dates: start: 20110215
  5. DIANEAL [Suspect]
     Route: 033
     Dates: start: 20110215

REACTIONS (2)
  - DEVICE RELATED INFECTION [None]
  - FUNGAL PERITONITIS [None]
